FAERS Safety Report 9142658 (Version 1)
Quarter: 2013Q1

REPORT INFORMATION
  Report Type: Spontaneous
  Country: NL (occurrence: NL)
  Receive Date: 20130306
  Receipt Date: 20130306
  Transmission Date: 20140127
  Serious: Yes (Hospitalization)
  Sender: FDA-Public Use
  Company Number: PHHY2013NL021593

PATIENT
  Sex: Female

DRUGS (3)
  1. ACLASTA [Suspect]
     Indication: OSTEOPOROSIS
     Dosage: 5 MG ONCE A YEAR
     Route: 042
     Dates: start: 20110311
  2. ACLASTA [Suspect]
     Dosage: 5 MG ONCE A YEAR
     Route: 042
     Dates: start: 20120313
  3. ANTICOAGULANTS [Concomitant]

REACTIONS (1)
  - Cardiac failure [Not Recovered/Not Resolved]
